FAERS Safety Report 13267897 (Version 1)
Quarter: 2017Q1

REPORT INFORMATION
  Report Type: Spontaneous
  Country: US (occurrence: US)
  Receive Date: 20170224
  Receipt Date: 20170224
  Transmission Date: 20170428
  Serious: No
  Sender: FDA-Public Use
  Company Number: US-BAYER-2017-037176

PATIENT
  Sex: Male
  Weight: 68 kg

DRUGS (5)
  1. DILTIAZEM. [Concomitant]
     Active Substance: DILTIAZEM
  2. MIRALAX [Suspect]
     Active Substance: POLYETHYLENE GLYCOL 3350
     Indication: GASTROINTESTINAL DISORDER
     Dosage: 1 DF, DAILY
     Route: 048
     Dates: start: 201702, end: 20170222
  3. ALFUZOSIN [Concomitant]
     Active Substance: ALFUZOSIN
  4. ATORVASTATIN [Concomitant]
     Active Substance: ATORVASTATIN
  5. LISINOPRIL. [Concomitant]
     Active Substance: LISINOPRIL

REACTIONS (3)
  - Product use issue [Unknown]
  - Product use issue [None]
  - Off label use [Unknown]

NARRATIVE: CASE EVENT DATE: 201702
